FAERS Safety Report 8278061-1 (Version None)
Quarter: 2012Q2

REPORT INFORMATION
  Report Type: 
  Country: None (occurrence: None)
  Receive Date: 20120412
  Receipt Date: 20120403
  Transmission Date: 20120825
  Serious: Yes (Death, Life-Threatening, Hospitalization, Other)
  Sender: FDA-Public Use
  Company Number: US-MYLANLABS-2012S1007492

PATIENT
  Sex: Female
  Weight: 80.74 kg

DRUGS (47)
  1. DIGOXIN [Suspect]
     Route: 048
     Dates: start: 20010701, end: 20090310
  2. CELEXA [Concomitant]
  3. DIAZEPAM [Concomitant]
  4. MECLIZINE [Concomitant]
  5. SENOKOT [Concomitant]
  6. CIPROFLOXACIN [Concomitant]
  7. DILTIAZEM HCL [Concomitant]
  8. FERGON [Concomitant]
  9. LEVAQUIN [Concomitant]
  10. LYRICA [Concomitant]
  11. PRILOSEC [Concomitant]
  12. TORADOL [Concomitant]
  13. AMARYL [Concomitant]
  14. COMBIVENT [Concomitant]
  15. HYDROCHLOROTHIAZIDE [Concomitant]
  16. HYTRIN [Concomitant]
  17. KAYEXALATE [Concomitant]
  18. MEDROL [Concomitant]
  19. METFORMIN HCL [Concomitant]
  20. NEXIUM [Concomitant]
  21. SLOW MAG [Concomitant]
  22. AEROBID [Concomitant]
  23. BENZOCAINE [Concomitant]
  24. CELEBREX [Concomitant]
  25. SPIRIVA [Concomitant]
  26. ZITHROMAX [Concomitant]
  27. ZOFRAN [Concomitant]
  28. ALDACTONE [Concomitant]
  29. ALBUTEROL [Concomitant]
  30. LOVENOX [Concomitant]
  31. MENTAX [Concomitant]
  32. WELLBUTRIN [Concomitant]
  33. ACTOS [Concomitant]
  34. LISINOPRIL [Concomitant]
  35. ASPIRIN [Concomitant]
  36. DARVOCET-N 100 [Concomitant]
  37. METHOTREXATE [Concomitant]
  38. CELEBREX [Concomitant]
  39. FOLTX [Concomitant]
  40. LASIX [Concomitant]
  41. PREDNISONE TAB [Concomitant]
  42. RHINOCORT [Concomitant]
  43. POTASSIUM CHLORIDE [Concomitant]
  44. ADVAIR DISKUS 100/50 [Concomitant]
  45. CORTISOL /00014602/ [Concomitant]
  46. XOPENEX [Concomitant]
  47. HUMALOG [Concomitant]

REACTIONS (91)
  - APATHY [None]
  - CHEST X-RAY ABNORMAL [None]
  - DYSARTHRIA [None]
  - EAR PAIN [None]
  - LABORATORY TEST ABNORMAL [None]
  - TOXICITY TO VARIOUS AGENTS [None]
  - DEATH [None]
  - APNOEA [None]
  - MUSCLE ATROPHY [None]
  - PNEUMONIA [None]
  - ANXIETY [None]
  - ASPIRATION PLEURAL CAVITY [None]
  - BEDRIDDEN [None]
  - BRONCHITIS [None]
  - CONDITION AGGRAVATED [None]
  - COUGH [None]
  - DYSLIPIDAEMIA [None]
  - HYPOTENSION [None]
  - NAUSEA [None]
  - VOMITING [None]
  - WHEEZING [None]
  - ASTHENIA [None]
  - ATRIAL FIBRILLATION [None]
  - HAEMOGLOBIN DECREASED [None]
  - ACTIVITIES OF DAILY LIVING IMPAIRED [None]
  - ALOPECIA [None]
  - EXERCISE TOLERANCE DECREASED [None]
  - RIB FRACTURE [None]
  - WEIGHT DECREASED [None]
  - ARRHYTHMIA [None]
  - DISEASE PROGRESSION [None]
  - CARDIAC PACEMAKER INSERTION [None]
  - ECHOCARDIOGRAM ABNORMAL [None]
  - ELECTROCARDIOGRAM ABNORMAL [None]
  - FLUID OVERLOAD [None]
  - MALNUTRITION [None]
  - MUSCULOSKELETAL CHEST PAIN [None]
  - MYOPATHY [None]
  - PAIN IN EXTREMITY [None]
  - RHONCHI [None]
  - TREATMENT NONCOMPLIANCE [None]
  - WHEELCHAIR USER [None]
  - COR PULMONALE [None]
  - HYPOXIA [None]
  - HYPOXIC-ISCHAEMIC ENCEPHALOPATHY [None]
  - PULMONARY HYPERTENSION [None]
  - BREATH SOUNDS ABNORMAL [None]
  - CHRONIC OBSTRUCTIVE PULMONARY DISEASE [None]
  - CONSTIPATION [None]
  - DECREASED INTEREST [None]
  - HYPERKALAEMIA [None]
  - JOINT SWELLING [None]
  - NECK PAIN [None]
  - RALES [None]
  - SINUS DISORDER [None]
  - TACHYCARDIA [None]
  - ANAEMIA [None]
  - HYPOGLYCAEMIA [None]
  - MYOCARDIAL ISCHAEMIA [None]
  - PLEURAL EFFUSION [None]
  - PULMONARY OEDEMA [None]
  - RESPIRATORY DISTRESS [None]
  - ARTHRALGIA [None]
  - DEPRESSION [None]
  - DYSPNOEA EXERTIONAL [None]
  - EMPHYSEMA [None]
  - LETHARGY [None]
  - LUNG INFILTRATION [None]
  - MENTAL STATUS CHANGES [None]
  - HYPOPHAGIA [None]
  - ENDOTRACHEAL INTUBATION [None]
  - CARDIAC FAILURE CONGESTIVE [None]
  - MITRAL VALVE INCOMPETENCE [None]
  - DEPRESSED LEVEL OF CONSCIOUSNESS [None]
  - DYSPNOEA [None]
  - EAR INFECTION [None]
  - ORTHOPNOEA [None]
  - TACHYPNOEA [None]
  - TELANGIECTASIA [None]
  - ATELECTASIS [None]
  - CHEYNE-STOKES RESPIRATION [None]
  - RESPIRATORY FAILURE [None]
  - CARDIOMEGALY [None]
  - DEHYDRATION [None]
  - FALL [None]
  - GENERAL PHYSICAL HEALTH DETERIORATION [None]
  - MUSCULAR WEAKNESS [None]
  - MUSCULOSKELETAL STIFFNESS [None]
  - OEDEMA PERIPHERAL [None]
  - OXYGEN SATURATION DECREASED [None]
  - OXYGEN SUPPLEMENTATION [None]
